FAERS Safety Report 19983940 (Version 1)
Quarter: 2021Q4

REPORT INFORMATION
  Report Type: Spontaneous
  Country: NP (occurrence: NP)
  Receive Date: 20211022
  Receipt Date: 20211022
  Transmission Date: 20220303
  Serious: Yes (Life-Threatening, Hospitalization)
  Sender: FDA-Public Use
  Company Number: NP-LUPIN PHARMACEUTICALS INC.-2021-20199

PATIENT
  Age: 17 Year
  Sex: Female

DRUGS (13)
  1. HYDROCORTISONE [Suspect]
     Active Substance: HYDROCORTISONE
     Indication: Antioxidant therapy
     Dosage: 200 MILLIGRAM, 24H CONTINUOUS INFUSION
     Route: 065
  2. NOREPINEPHRINE [Suspect]
     Active Substance: NOREPINEPHRINE
     Indication: Mean arterial pressure decreased
     Dosage: 0.01 MICROGRAM/KILOGRAM
     Route: 065
  3. NOREPINEPHRINE [Suspect]
     Active Substance: NOREPINEPHRINE
     Indication: Shock
     Dosage: 0.3 MICROGRAM/KILOGRAM
     Route: 065
  4. DOBUTAMINE [Suspect]
     Active Substance: DOBUTAMINE HYDROCHLORIDE
     Indication: Mean arterial pressure decreased
     Dosage: 5 MICROGRAM/KILOGRAM
     Route: 065
  5. DOBUTAMINE [Suspect]
     Active Substance: DOBUTAMINE HYDROCHLORIDE
     Indication: Shock
  6. TORSEMIDE [Suspect]
     Active Substance: TORSEMIDE
     Indication: Acute kidney injury
     Dosage: 5 MILLIGRAM
     Route: 065
  7. ACETYLCYSTEINE [Suspect]
     Active Substance: ACETYLCYSTEINE
     Indication: Antioxidant therapy
     Dosage: UNK, 24H CONTINUOUS INFUSION
     Route: 065
  8. THIAMINE [Suspect]
     Active Substance: THIAMINE
     Indication: Antioxidant therapy
     Dosage: UNK, 24H CONTINUOUS INFUSION
     Route: 065
  9. VITAMIN C [Suspect]
     Active Substance: ASCORBIC ACID
     Indication: Antioxidant therapy
     Dosage: UNK, 24H CONTINUOUS INFUSION
     Route: 065
  10. SODIUM BICARBONATE [Concomitant]
     Active Substance: SODIUM BICARBONATE
     Indication: Metabolic acidosis
     Dosage: UNK
     Route: 042
  11. MAGNESIUM SULFATE [Concomitant]
     Active Substance: MAGNESIUM SULFATE
     Indication: Metabolic acidosis
     Dosage: 2 GRAM
     Route: 042
  12. MAGNESIUM SULFATE [Concomitant]
     Active Substance: MAGNESIUM SULFATE
     Dosage: 6 GRAM
     Route: 042
  13. VASOPRESSIN [Concomitant]
     Active Substance: VASOPRESSIN
     Indication: Shock
     Dosage: UNK
     Route: 065

REACTIONS (1)
  - Drug ineffective [Unknown]
